FAERS Safety Report 8054654-1 (Version None)
Quarter: 2012Q1

REPORT INFORMATION
  Report Type: 
  Country: None (occurrence: None)
  Receive Date: 20120119
  Receipt Date: 20120113
  Transmission Date: 20120608
  Serious: No
  Sender: FDA-Public Use
  Company Number: US-PFIZER INC-2011232012

PATIENT
  Sex: Female
  Weight: 98 kg

DRUGS (6)
  1. FLECTOR [Suspect]
     Indication: INTERVERTEBRAL DISC PROTRUSION
     Dosage: UNK, 1X/DAY
     Route: 062
     Dates: start: 20110301
  2. ULTRACET [Suspect]
     Indication: INTERVERTEBRAL DISC PROTRUSION
  3. NEURONTIN [Suspect]
     Indication: BACK PAIN
     Dosage: 300 MG, 2X/DAY
     Route: 048
     Dates: start: 20110301, end: 20110601
  4. NEURONTIN [Suspect]
     Indication: INTERVERTEBRAL DISC PROTRUSION
     Dosage: 600 MG, 2X/DAY
     Route: 048
     Dates: start: 20110601
  5. ULTRACET [Suspect]
     Indication: BACK PAIN
     Dosage: 37.5 MG, 3X/DAY
     Route: 048
     Dates: start: 20110301
  6. SYNTHROID [Concomitant]
     Indication: THYROID DISORDER
     Dosage: 1 UG, UNK

REACTIONS (5)
  - SLUGGISHNESS [None]
  - IMPAIRED WORK ABILITY [None]
  - DIZZINESS [None]
  - IMPAIRED DRIVING ABILITY [None]
  - DRUG INEFFECTIVE [None]
